FAERS Safety Report 25451048 (Version 2)
Quarter: 2025Q3

REPORT INFORMATION
  Report Type: Spontaneous
  Country: US (occurrence: US)
  Receive Date: 20250618
  Receipt Date: 20250701
  Transmission Date: 20251021
  Serious: Yes (Hospitalization, Other)
  Sender: PFIZER
  Company Number: US-PFIZER INC-PV202500071306

PATIENT
  Age: 16 Year
  Sex: Male

DRUGS (1)
  1. KETAMINE HYDROCHLORIDE [Suspect]
     Active Substance: KETAMINE HYDROCHLORIDE
     Dosage: UNK UNK, DAILY
     Route: 045

REACTIONS (4)
  - Intestinal pseudo-obstruction [Recovered/Resolved]
  - Drug abuse [Unknown]
  - Drug withdrawal syndrome [Unknown]
  - Product use issue [Unknown]
